FAERS Safety Report 4649124-4 (Version None)
Quarter: 2005Q2

REPORT INFORMATION
  Report Type: 
  Country: None (occurrence: None)
  Receive Date: 20050429
  Receipt Date: 20050418
  Transmission Date: 20051028
  Serious: Yes (Other)
  Sender: FDA-Public Use
  Company Number: JP-GLAXOSMITHKLINE-B0378530A

PATIENT
  Age: 14 Year
  Sex: Male
  Weight: 50 kg

DRUGS (32)
  1. ALKERAN [Suspect]
     Indication: ALLOGENIC BONE MARROW TRANSPLANTATION THERAPY
     Dosage: 70MGM2 PER DAY
     Route: 042
     Dates: start: 20040312, end: 20040314
  2. NEUTROGIN [Concomitant]
     Dates: start: 20040322, end: 20040406
  3. CYCLOSPORINE [Concomitant]
     Indication: IMMUNOSUPPRESSION
     Route: 065
     Dates: start: 20040408
  4. TACROLIMUS HYDRATE [Concomitant]
     Indication: IMMUNOSUPPRESSION
     Route: 065
     Dates: start: 20040318, end: 20040403
  5. METHOTREXATE [Concomitant]
     Indication: IMMUNOSUPPRESSION
     Route: 065
     Dates: start: 20040318, end: 20040318
  6. METHOTREXATE [Concomitant]
     Route: 065
     Dates: start: 20040320, end: 20040320
  7. METHOTREXATE [Concomitant]
     Route: 065
     Dates: start: 20040323, end: 20040323
  8. METHOTREXATE [Concomitant]
     Route: 065
     Dates: start: 20040328, end: 20040328
  9. METHOTREXATE [Concomitant]
     Route: 065
     Dates: start: 20040407, end: 20040407
  10. BAKTAR [Concomitant]
     Route: 048
     Dates: start: 20040302
  11. CIPROXAN [Concomitant]
     Route: 048
     Dates: start: 20040311, end: 20040322
  12. DIFLUCAN [Concomitant]
     Route: 048
     Dates: start: 20040311, end: 20040322
  13. URSO 250 [Concomitant]
     Route: 048
     Dates: start: 20040311, end: 20040614
  14. SELBEX [Concomitant]
     Route: 048
     Dates: start: 20040311
  15. ZOVIRAX [Concomitant]
     Route: 048
     Dates: start: 20040311
  16. CALONAL [Concomitant]
     Route: 048
  17. POLARAMINE [Concomitant]
     Route: 048
     Dates: start: 20040402
  18. ZADITEN [Concomitant]
     Route: 048
     Dates: start: 20040402
  19. GASTER [Concomitant]
     Route: 048
     Dates: start: 20040605
  20. KYTRIL [Concomitant]
     Route: 042
     Dates: start: 20040312, end: 20040316
  21. HEPARIN [Concomitant]
     Dates: start: 20040312
  22. MEYLON [Concomitant]
     Route: 042
     Dates: start: 20040312, end: 20040318
  23. GASTER [Concomitant]
     Dates: start: 20040317
  24. CARBENIN [Concomitant]
     Route: 042
     Dates: start: 20040322, end: 20040324
  25. DIFLUCAN [Concomitant]
     Route: 042
     Dates: start: 20040323, end: 20040402
  26. MEROPEN [Concomitant]
     Route: 042
     Dates: start: 20040324, end: 20040407
  27. MINOCYCLINE HCL [Concomitant]
     Route: 042
     Dates: start: 20040327, end: 20040402
  28. PREDNISOLONE [Concomitant]
     Dates: start: 20040327, end: 20040429
  29. MORPHINE HCL ELIXIR [Concomitant]
     Dates: start: 20040408
  30. OMEGACIN [Concomitant]
     Route: 042
     Dates: start: 20040407, end: 20040428
  31. ADENOSINE [Concomitant]
     Route: 042
     Dates: start: 20040415, end: 20040419
  32. FUNGUARD [Concomitant]
     Route: 042
     Dates: start: 20040414, end: 20040514

REACTIONS (4)
  - CYSTITIS HAEMORRHAGIC [None]
  - ENGRAFTMENT SYNDROME [None]
  - INFECTION [None]
  - PYREXIA [None]
